FAERS Safety Report 15316095 (Version 1)
Quarter: 2018Q4

REPORT INFORMATION
  Report Type: Spontaneous
  Country: ZA (occurrence: ZA)
  Receive Date: 20180824
  Receipt Date: 20180824
  Transmission Date: 20190204
  Serious: Yes (Death)
  Sender: FDA-Public Use
  Company Number: ZA-PFIZER INC-2018339211

PATIENT
  Age: 59 Year
  Sex: Female

DRUGS (5)
  1. DUROGESIC [Suspect]
     Active Substance: FENTANYL
     Dosage: 75 UG, UNK
  2. MACRODANTIN [Suspect]
     Active Substance: NITROFURANTOIN
     Dosage: 100 MG, UNK
  3. EPANUTIN [Suspect]
     Active Substance: PHENYTOIN SODIUM
     Dosage: 125 MG, UNK
  4. TRAMACET [Suspect]
     Active Substance: ACETAMINOPHEN\TRAMADOL
     Dosage: UNK
  5. PANTOLOC CONTROL [Suspect]
     Active Substance: PANTOPRAZOLE SODIUM
     Dosage: 40 MG, UNK

REACTIONS (1)
  - Brain cancer metastatic [Fatal]

NARRATIVE: CASE EVENT DATE: 20171108
